FAERS Safety Report 7641477-8 (Version None)
Quarter: 2011Q3

REPORT INFORMATION
  Report Type: 
  Country: None (occurrence: None)
  Receive Date: 20110722
  Receipt Date: 20110714
  Transmission Date: 20111222
  Serious: Yes (Other)
  Sender: FDA-Public Use
  Company Number: 1000022203

PATIENT
  Sex: Female
  Weight: 54.4 kg

DRUGS (2)
  1. SAVELLA [Suspect]
     Indication: FIBROMYALGIA
     Dosage: 50 MG (50 MG, 1 IN 1 D), ORAL
     Route: 048
     Dates: start: 20101109, end: 20101101
  2. SAVELLA [Suspect]
     Indication: FIBROMYALGIA
     Dosage: 100 MG (50 MG, 2 IN 1 D), ORAL
     Route: 048
     Dates: start: 20101101, end: 20101203

REACTIONS (5)
  - PERSONALITY CHANGE [None]
  - IRRITABILITY [None]
  - CRYING [None]
  - SUICIDAL IDEATION [None]
  - VERBAL ABUSE [None]
